FAERS Safety Report 4280151-5 (Version None)
Quarter: 2004Q1

REPORT INFORMATION
  Report Type: 
  Country: None (occurrence: None)
  Receive Date: 20040126
  Receipt Date: 20040113
  Transmission Date: 20041129
  Serious: Yes (Hospitalization)
  Sender: FDA-Public Use
  Company Number: 2004001329

PATIENT
  Age: 5 Year
  Sex: Female

DRUGS (3)
  1. ZITHROMAX [Suspect]
     Indication: NASOPHARYNGITIS
     Dosage: ORAL
     Route: 048
     Dates: start: 20031226, end: 20031226
  2. CEFTRIAXONE [Suspect]
     Indication: ILL-DEFINED DISORDER
     Dosage: INTRAVENOUS
     Route: 042
     Dates: start: 20031226, end: 20031226
  3. METOCLOPRAMIDE [Suspect]
     Indication: ILL-DEFINED DISORDER
     Dates: start: 20031226

REACTIONS (5)
  - ANAPHYLACTOID REACTION [None]
  - ANURIA [None]
  - ASTHMA [None]
  - THERAPEUTIC PRODUCT INEFFECTIVE [None]
  - VOMITING [None]
